FAERS Safety Report 6633261-9 (Version None)
Quarter: 2010Q1

REPORT INFORMATION
  Report Type: 
  Country: None (occurrence: None)
  Receive Date: 20100312
  Receipt Date: 20100308
  Transmission Date: 20100710
  Serious: Yes (Other)
  Sender: FDA-Public Use
  Company Number: HK-PFIZER INC-2010030696

PATIENT
  Sex: Female

DRUGS (1)
  1. CELEBREX [Suspect]
     Indication: MUSCULOSKELETAL PAIN
     Dosage: 200 MG, 3X/DAY
     Route: 048
     Dates: end: 20100301

REACTIONS (3)
  - CHEST DISCOMFORT [None]
  - MUSCULOSKELETAL PAIN [None]
  - PALPITATIONS [None]
